FAERS Safety Report 21706565 (Version 1)
Quarter: 2022Q4

REPORT INFORMATION
  Report Type: Spontaneous
  Country: CN (occurrence: CN)
  Receive Date: 20221209
  Receipt Date: 20221209
  Transmission Date: 20230113
  Serious: Yes (Other)
  Sender: FDA-Public Use
  Company Number: CN-BRISTOL-MYERS SQUIBB COMPANY-BMS-2022-026321

PATIENT
  Age: 58 Year
  Sex: Male

DRUGS (6)
  1. NIVOLUMAB [Suspect]
     Active Substance: NIVOLUMAB
     Indication: Sarcomatoid carcinoma of the lung
     Dosage: 200 MG D1 AND D15
     Route: 065
     Dates: start: 20200610
  2. NIVOLUMAB [Suspect]
     Active Substance: NIVOLUMAB
     Dosage: 200MG D1
     Route: 065
     Dates: start: 20200717
  3. CARBOPLATIN [Suspect]
     Active Substance: CARBOPLATIN
     Indication: Sarcomatoid carcinoma of the lung
     Dosage: 0.4G D1
     Route: 065
     Dates: start: 20200610
  4. CARBOPLATIN [Suspect]
     Active Substance: CARBOPLATIN
     Dosage: 0.4G D1
     Route: 065
     Dates: start: 20200717
  5. PACLITAXEL [Suspect]
     Active Substance: PACLITAXEL
     Indication: Sarcomatoid carcinoma of the lung
     Dosage: 200 MG D1, 100MG D7 AND D15
     Route: 065
     Dates: start: 20200610
  6. PACLITAXEL [Suspect]
     Active Substance: PACLITAXEL
     Dosage: 200 MG D1
     Route: 065
     Dates: start: 20200717

REACTIONS (4)
  - Renal impairment [Unknown]
  - Pyrexia [Unknown]
  - Oedema peripheral [Unknown]
  - Blood albumin decreased [Unknown]

NARRATIVE: CASE EVENT DATE: 20200101
